FAERS Safety Report 4559017-9 (Version None)
Quarter: 2005Q1

REPORT INFORMATION
  Report Type: 
  Country: None (occurrence: None)
  Receive Date: 20050124
  Receipt Date: 20050112
  Transmission Date: 20050727
  Serious: Yes (Hospitalization)
  Sender: FDA-Public Use
  Company Number: US-BRISTOL-MYERS SQUIBB COMPANY-12829446

PATIENT
  Age: 57 Year
  Sex: Male

DRUGS (14)
  1. METOPROLOL TARTRATE [Suspect]
  2. LISINOPRIL [Suspect]
  3. DIGOXIN [Suspect]
  4. SPIRONOLACTONE [Suspect]
  5. LASIX [Concomitant]
  6. COUMADIN [Concomitant]
  7. ASPIRIN [Concomitant]
  8. CALCIUM CARBONATE [Concomitant]
  9. GEMFIBROZIL [Concomitant]
  10. INSULIN [Concomitant]
  11. ISOSORBIDE [Concomitant]
  12. LEVOTHYROXINE [Concomitant]
  13. METOLAZONE [Concomitant]
  14. SIMVASTATIN [Concomitant]

REACTIONS (2)
  - RENAL FAILURE ACUTE [None]
  - RENAL IMPAIRMENT [None]
